FAERS Safety Report 14479805 (Version 2)
Quarter: 2018Q2

REPORT INFORMATION
  Report Type: Spontaneous
  Country: NL (occurrence: NL)
  Receive Date: 20180202
  Receipt Date: 20180422
  Transmission Date: 20180711
  Serious: Yes (Other)
  Sender: FDA-Public Use
  Company Number: NL-APOTEX-2018AP005964

PATIENT
  Sex: Male

DRUGS (2)
  1. AZITHROMYCIN APOTEX FILMOMHULDE TABLETTEN [Suspect]
     Active Substance: AZITHROMYCIN
     Indication: RESPIRATORY TRACT INFECTION
     Dosage: 250 MG, EVERY DAY
     Route: 048
  2. AZITHROMYCIN APOTEX FILMOMHULDE TABLETTEN [Suspect]
     Active Substance: AZITHROMYCIN
     Dosage: ONE TABLET EVERY OTHER DAY
     Route: 048

REACTIONS (3)
  - Dry skin [Not Recovered/Not Resolved]
  - Malaise [Not Recovered/Not Resolved]
  - Skin exfoliation [Not Recovered/Not Resolved]
